FAERS Safety Report 24779229 (Version 4)
Quarter: 2025Q1

REPORT INFORMATION
  Report Type: Report from Study
  Country: FR (occurrence: FR)
  Receive Date: 20241226
  Receipt Date: 20250326
  Transmission Date: 20250408
  Serious: Yes (Other)
  Sender: ALNYLAM PHARMACEUTICALS
  Company Number: FR-ALNYLAM PHARMACEUTICALS, INC.-ALN-2024-007232

PATIENT

DRUGS (1)
  1. OXLUMO [Suspect]
     Active Substance: LUMASIRAN
     Indication: Product used for unknown indication
     Route: 065

REACTIONS (23)
  - Suicidal ideation [Unknown]
  - Syncope [Unknown]
  - Multiple sclerosis [Unknown]
  - Back pain [Recovered/Resolved]
  - Myalgia [Not Recovered/Not Resolved]
  - Stress [Unknown]
  - Uterine mass [Unknown]
  - Dizziness [Unknown]
  - Lymphatic disorder [Unknown]
  - Tongue discolouration [Recovered/Resolved]
  - Mucosal disorder [Unknown]
  - Hypervolaemia [Unknown]
  - Decreased appetite [Unknown]
  - Weight decreased [Unknown]
  - Hypoglycaemia [Unknown]
  - Polyuria [Unknown]
  - Sleep disorder [Unknown]
  - Fatigue [Unknown]
  - Mobility decreased [Unknown]
  - Vision blurred [Unknown]
  - Strabismus [Unknown]
  - Emotional distress [Unknown]
  - Condition aggravated [Unknown]
